FAERS Safety Report 5014629-3 (Version None)
Quarter: 2006Q2

REPORT INFORMATION
  Report Type: 
  Country: None (occurrence: None)
  Receive Date: 20060531
  Receipt Date: 20060522
  Transmission Date: 20061013
  Serious: Yes (Other)
  Sender: FDA-Public Use
  Company Number: 2006UW10102

PATIENT
  Age: 54 Year
  Sex: Female

DRUGS (8)
  1. TOPROL-XL [Suspect]
     Route: 048
  2. AVELOX [Suspect]
     Indication: SINUSITIS
     Route: 048
     Dates: start: 20060417, end: 20060417
  3. PLAVIX [Concomitant]
  4. MOBIC [Concomitant]
  5. ZOCOR [Concomitant]
  6. NORVASC [Concomitant]
  7. PROTONIX [Concomitant]
  8. NITROGLYCERIN [Concomitant]

REACTIONS (6)
  - ANXIETY [None]
  - FATIGUE [None]
  - HYPOTENSION [None]
  - INCOHERENT [None]
  - LOSS OF CONSCIOUSNESS [None]
  - THROAT TIGHTNESS [None]
